FAERS Safety Report 16435120 (Version 1)
Quarter: 2019Q2

REPORT INFORMATION
  Report Type: Spontaneous
  Country: US (occurrence: US)
  Receive Date: 20190614
  Receipt Date: 20190614
  Transmission Date: 20190711
  Serious: Yes (Other)
  Sender: FDA-Public Use
  Company Number: US-TEVA-2019-US-1062521

PATIENT
  Sex: Female

DRUGS (1)
  1. JUNEL FE 1/20 [Suspect]
     Active Substance: ETHINYL ESTRADIOL\NORETHINDRONE ACETATE
     Indication: CONTRACEPTION
     Route: 065

REACTIONS (7)
  - Genital swelling [Unknown]
  - Suicidal ideation [Unknown]
  - Sluggishness [Unknown]
  - Pruritus genital [Unknown]
  - Depression [Unknown]
  - Hypersensitivity [Unknown]
  - Insomnia [Unknown]
